FAERS Safety Report 5542028-4 (Version None)
Quarter: 2007Q4

REPORT INFORMATION
  Report Type: 
  Country: None (occurrence: None)
  Receive Date: 20071210
  Receipt Date: 20071129
  Transmission Date: 20080405
  Serious: Yes (Hospitalization)
  Sender: FDA-Public Use
  Company Number: JP-ASTRAZENECA-2007AP07677

PATIENT
  Age: 2 Year

DRUGS (3)
  1. TENORMIN [Suspect]
     Dosage: 4 TABLETS TAKEN
     Route: 048
  2. AMLODIPINE BESYLATE [Suspect]
     Dosage: UNKNOWN
     Route: 048
  3. AMOBAN [Suspect]
     Dosage: UNKNOWN
     Route: 048

REACTIONS (2)
  - ACCIDENTAL DRUG INTAKE BY CHILD [None]
  - ACCIDENTAL OVERDOSE [None]
